FAERS Safety Report 24839746 (Version 1)
Quarter: 2025Q1

REPORT INFORMATION
  Report Type: Spontaneous
  Country: US (occurrence: US)
  Receive Date: 20250114
  Receipt Date: 20250114
  Transmission Date: 20250408
  Serious: No
  Sender: AMGEN
  Company Number: US-AMGEN-USASP2025003559

PATIENT
  Sex: Female

DRUGS (1)
  1. TEPEZZA [Suspect]
     Active Substance: TEPROTUMUMAB-TRBW
     Indication: Toxic goitre
     Dosage: 1320 MILLIGRAM, Q3WK
     Route: 040
     Dates: start: 20241126

REACTIONS (7)
  - Vision blurred [Unknown]
  - Vitreous floaters [Unknown]
  - Palpitations [Unknown]
  - Hypoaesthesia [Unknown]
  - Blood pressure increased [Unknown]
  - Heart rate increased [Unknown]
  - Anxiety [Unknown]
